FAERS Safety Report 8023973-7 (Version None)
Quarter: 2012Q1

REPORT INFORMATION
  Report Type: 
  Country: None (occurrence: None)
  Receive Date: 20120105
  Receipt Date: 20120103
  Transmission Date: 20120608
  Serious: Yes (Life-Threatening, Hospitalization)
  Sender: FDA-Public Use
  Company Number: NZ-B.I. PHARMACEUTICALS,INC./RIDGEFIELD-2011-AU-02253AU

PATIENT
  Sex: Male
  Weight: 70 kg

DRUGS (4)
  1. CELIPROLOL [Concomitant]
     Dosage: 300 MG
  2. PRADAXA [Suspect]
     Indication: ATRIAL FIBRILLATION
     Dosage: 300 MG
     Dates: start: 20110801, end: 20110822
  3. MULTIVITAMIN [Concomitant]
     Dosage: 1 DAILY
  4. ALLOPURINOL [Concomitant]
     Dosage: 150 MG

REACTIONS (4)
  - DIVERTICULAR PERFORATION [None]
  - GASTROINTESTINAL HAEMORRHAGE [None]
  - PAIN [None]
  - GASTROOESOPHAGEAL REFLUX DISEASE [None]
